FAERS Safety Report 6814077-7 (Version None)
Quarter: 2010Q3

REPORT INFORMATION
  Report Type: 
  Country: None (occurrence: None)
  Receive Date: 20100702
  Receipt Date: 20100630
  Transmission Date: 20110219
  Serious: Yes (Death)
  Sender: FDA-Public Use
  Company Number: PHHY2010IE42892

PATIENT
  Sex: Female

DRUGS (5)
  1. EXELON [Suspect]
     Dosage: 4.5 MG, BID
  2. SEROQUEL [Concomitant]
  3. EPILIM [Concomitant]
  4. ASPIRIN [Concomitant]
  5. TRITACE [Concomitant]
     Dosage: 5 MG, UNK

REACTIONS (2)
  - DEATH [None]
  - NIGHT SWEATS [None]
